FAERS Safety Report 6075279-3 (Version None)
Quarter: 2009Q1

REPORT INFORMATION
  Report Type: 
  Country: None (occurrence: None)
  Receive Date: 20090212
  Receipt Date: 20090130
  Transmission Date: 20090719
  Serious: Yes (Other)
  Sender: FDA-Public Use
  Company Number: PHHY2009JP03371

PATIENT

DRUGS (2)
  1. VOLTAREN [Suspect]
     Dosage: UNK
     Route: 048
  2. PREDONINE [Suspect]
     Dosage: UNK

REACTIONS (2)
  - SJOGREN'S SYNDROME [None]
  - VISUAL ACUITY REDUCED [None]
